FAERS Safety Report 21676044 (Version 1)
Quarter: 2022Q4

REPORT INFORMATION
  Report Type: Spontaneous
  Country: CA (occurrence: None)
  Receive Date: 20221202
  Receipt Date: 20221202
  Transmission Date: 20230113
  Serious: Yes (Hospitalization)
  Sender: FDA-Public Use
  Company Number: 2022A392421

PATIENT
  Age: 85 Year
  Sex: Male

DRUGS (1)
  1. DAPAGLIFLOZIN [Suspect]
     Active Substance: DAPAGLIFLOZIN
     Indication: Cardiac failure congestive
     Route: 048
     Dates: start: 20220801

REACTIONS (14)
  - Appetite disorder [Unknown]
  - Constipation [Unknown]
  - Pyrexia [Unknown]
  - Fatigue [Unknown]
  - Nasal congestion [Unknown]
  - Rhinorrhoea [Unknown]
  - Nausea [Not Recovered/Not Resolved]
  - Tremor [Unknown]
  - Hyperhidrosis [Unknown]
  - Heart rate increased [Unknown]
  - Dizziness [Not Recovered/Not Resolved]
  - Decreased appetite [Not Recovered/Not Resolved]
  - Confusional state [Not Recovered/Not Resolved]
  - Swelling [Not Recovered/Not Resolved]
